FAERS Safety Report 6142894-8 (Version None)
Quarter: 2009Q2

REPORT INFORMATION
  Report Type: 
  Country: None (occurrence: None)
  Receive Date: 20090403
  Receipt Date: 20090326
  Transmission Date: 20091009
  Serious: Yes (Other)
  Sender: FDA-Public Use
  Company Number: JP-PFIZER INC-2009180856

PATIENT

DRUGS (4)
  1. NORVASC [Suspect]
     Dosage: 5 MG, UNK
     Route: 048
  2. THYRADIN-S [Suspect]
     Route: 048
  3. HIRNAMIN [Suspect]
     Route: 048
  4. MEILAX [Suspect]
     Route: 048

REACTIONS (3)
  - BLOOD PRESSURE DECREASED [None]
  - SUICIDE ATTEMPT [None]
  - TACHYCARDIA [None]
